FAERS Safety Report 7240855-9 (Version None)
Quarter: 2011Q1

REPORT INFORMATION
  Report Type: 
  Country: None (occurrence: None)
  Receive Date: 20110124
  Receipt Date: 20110117
  Transmission Date: 20110831
  Serious: Yes (Other)
  Sender: FDA-Public Use
  Company Number: BE-ABBOTT-11P-013-0699630-00

PATIENT
  Sex: Male

DRUGS (5)
  1. HUMIRA [Suspect]
  2. HUMIRA [Suspect]
     Indication: PRODUCT USED FOR UNKNOWN INDICATION
     Dosage: INDUCTION OF 160/80MG
  3. METHYLPREDNISOLONE [Concomitant]
     Indication: CROHN'S DISEASE
  4. HUMIRA [Suspect]
  5. MESALAMINE [Concomitant]
     Indication: CROHN'S DISEASE

REACTIONS (3)
  - FISTULA [None]
  - ANAL ABSCESS [None]
  - RECTAL ULCER [None]
